FAERS Safety Report 8714167 (Version 2)
Quarter: 2012Q4

REPORT INFORMATION
  Report Type: 
  Country: US (occurrence: US)
  Receive Date: 20120808
  Receipt Date: 20120912
  Transmission Date: 20130627
  Serious: Yes (Hospitalization, Other)
  Sender: FDA-Public Use
  Company Number: US-GILEAD-2012-0059365

PATIENT
  Age: 78 Year
  Sex: Female

DRUGS (3)
  1. LETAIRIS [Suspect]
     Indication: PULMONARY HYPERTENSION
     Dosage: 5 mg, UNK
     Route: 048
     Dates: start: 20110630
  2. LETAIRIS [Suspect]
     Indication: SCLERODERMA
  3. ADCIRCA [Concomitant]

REACTIONS (2)
  - Fall [Unknown]
  - Hip fracture [Unknown]
